FAERS Safety Report 19317597 (Version 1)
Quarter: 2021Q2

REPORT INFORMATION
  Report Type: Spontaneous
  Country: US (occurrence: US)
  Receive Date: 20210528
  Receipt Date: 20210528
  Transmission Date: 20210717
  Serious: Yes (Other)
  Sender: FDA-Public Use
  Company Number: US-PURDUE-USA-2020-0189774

PATIENT
  Sex: Male

DRUGS (7)
  1. OXYCONTIN [Suspect]
     Active Substance: OXYCODONE HYDROCHLORIDE
     Indication: PRODUCT USED FOR UNKNOWN INDICATION
     Route: 048
  2. MSIR [Suspect]
     Active Substance: MORPHINE SULFATE
     Indication: PRODUCT USED FOR UNKNOWN INDICATION
     Route: 065
  3. DILAUDID [Suspect]
     Active Substance: HYDROMORPHONE HYDROCHLORIDE
     Indication: PRODUCT USED FOR UNKNOWN INDICATION
     Route: 048
  4. HYSINGLA ER [Suspect]
     Active Substance: HYDROCODONE BITARTRATE
     Indication: PRODUCT USED FOR UNKNOWN INDICATION
     Route: 048
  5. OXYFAST [Suspect]
     Active Substance: OXYCODONE
     Route: 065
  6. OXYIR [Suspect]
     Active Substance: OXYCODONE HYDROCHLORIDE
     Indication: PRODUCT USED FOR UNKNOWN INDICATION
     Route: 065
  7. MS CONTIN [Suspect]
     Active Substance: MORPHINE SULFATE
     Indication: PRODUCT USED FOR UNKNOWN INDICATION
     Route: 048

REACTIONS (17)
  - Fatigue [Unknown]
  - Arthralgia [Unknown]
  - Diarrhoea [Unknown]
  - Drug dependence [Unknown]
  - Constipation [Unknown]
  - Weight decreased [Unknown]
  - Anxiety [Unknown]
  - Anger [Unknown]
  - Myalgia [Unknown]
  - Hyperhidrosis [Unknown]
  - Aggression [Unknown]
  - Insomnia [None]
  - Weight increased [Unknown]
  - Sexual dysfunction [Unknown]
  - Malaise [Unknown]
  - Depression [Unknown]
  - Peripheral swelling [Unknown]
